FAERS Safety Report 5533406-8 (Version None)
Quarter: 2007Q4

REPORT INFORMATION
  Report Type: 
  Country: None (occurrence: None)
  Receive Date: 20071128
  Receipt Date: 20070917
  Transmission Date: 20080405
  Serious: Yes (Hospitalization)
  Sender: FDA-Public Use
  Company Number: 2007S1000400

PATIENT
  Age: 56 Year
  Sex: Male
  Weight: 226.7 kg

DRUGS (10)
  1. CUBICIN [Suspect]
     Indication: ENDOCARDITIS
     Dosage: 5 MG/KG; Q24H; IV
     Route: 042
     Dates: start: 20070611, end: 20070720
  2. CUBICIN [Suspect]
     Indication: STREPTOCOCCAL INFECTION
     Dosage: 5 MG/KG; Q24H; IV
     Route: 042
     Dates: start: 20070611, end: 20070720
  3. CEFTRIAXONE [Concomitant]
  4. LOVASTATIN [Concomitant]
  5. METOPROLOL [Concomitant]
  6. ALBUTEROL [Concomitant]
  7. QVAR 40 [Concomitant]
  8. METROGEL [Concomitant]
  9. NABUMETONE [Concomitant]
  10. CEFTAZIDIME [Concomitant]

REACTIONS (3)
  - BLOOD CREATINE PHOSPHOKINASE INCREASED [None]
  - NEUTROPENIA [None]
  - PYREXIA [None]
